FAERS Safety Report 17479518 (Version 1)
Quarter: 2020Q1

REPORT INFORMATION
  Report Type: Spontaneous
  Country: GB (occurrence: GB)
  Receive Date: 20200228
  Receipt Date: 20200228
  Transmission Date: 20200409
  Serious: Yes (Other)
  Sender: FDA-Public Use
  Company Number: GB-NAPPMUNDI-GBR-2020-0075307

PATIENT
  Age: 60 Year
  Sex: Female
  Weight: 72 kg

DRUGS (8)
  1. OXYNORM [Suspect]
     Active Substance: OXYCODONE HYDROCHLORIDE
     Indication: PAIN
     Dosage: UNK
     Route: 048
     Dates: start: 20200205, end: 20200207
  2. LITHIUM. [Concomitant]
     Active Substance: LITHIUM
  3. LOFEPRAMINE HYDROCHLORIDE [Concomitant]
     Active Substance: LOFEPRAMINE HYDROCHLORIDE
  4. OXYCONTIN [Suspect]
     Active Substance: OXYCODONE HYDROCHLORIDE
     Indication: PAIN
     Dosage: UNK
     Route: 048
     Dates: start: 20200205, end: 20200207
  5. QUETIAPINE. [Concomitant]
     Active Substance: QUETIAPINE
  6. TIOTROPIUM [Concomitant]
     Active Substance: TIOTROPIUM
  7. SALBUTAMOL [Concomitant]
     Active Substance: ALBUTEROL
  8. TAMOXIFEN CITRATE. [Concomitant]
     Active Substance: TAMOXIFEN CITRATE

REACTIONS (1)
  - Paranoia [Recovering/Resolving]

NARRATIVE: CASE EVENT DATE: 20200206
